FAERS Safety Report 10136686 (Version 3)
Quarter: 2014Q2

REPORT INFORMATION
  Report Type: Report from Study
  Country: US (occurrence: US)
  Receive Date: 20140429
  Receipt Date: 20140606
  Transmission Date: 20141212
  Serious: Yes (Hospitalization, Disabling)
  Sender: FDA-Public Use
  Company Number: US-JNJFOC-20140313957

PATIENT
  Age: 51 Year
  Sex: Male
  Weight: 53 kg

DRUGS (5)
  1. REMICADE [Suspect]
     Indication: ANKYLOSING SPONDYLITIS
     Route: 042
     Dates: start: 20130610, end: 20131216
  2. PREDNISONE [Concomitant]
     Indication: ANKYLOSING SPONDYLITIS
     Route: 065
     Dates: start: 201303, end: 201310
  3. IBUPROFEN [Concomitant]
     Indication: ANKYLOSING SPONDYLITIS
     Route: 065
     Dates: start: 201305, end: 201310
  4. BACTRIM [Concomitant]
     Indication: ANTIFUNGAL PROPHYLAXIS
     Route: 065
     Dates: start: 201303, end: 201310
  5. OMEPRAZOLE [Concomitant]
     Indication: GASTROOESOPHAGEAL REFLUX DISEASE
     Route: 065
     Dates: start: 201303, end: 201310

REACTIONS (4)
  - Perirectal abscess [Unknown]
  - Colonic fistula [Unknown]
  - Diverticulitis [Unknown]
  - Post procedural complication [Not Recovered/Not Resolved]
